FAERS Safety Report 15930772 (Version 1)
Quarter: 2019Q1

REPORT INFORMATION
  Report Type: Spontaneous
  Country: US (occurrence: US)
  Receive Date: 20190206
  Receipt Date: 20190206
  Transmission Date: 20190417
  Serious: Yes (Other)
  Sender: FDA-Public Use
  Company Number: None

PATIENT
  Age: 44 Year
  Sex: Male
  Weight: 83.25 kg

DRUGS (5)
  1. CIPROFLOXACIN. [Suspect]
     Active Substance: CIPROFLOXACIN
     Indication: PROSTATITIS
     Dosage: ?          QUANTITY:40 TABLET(S);?
     Route: 048
     Dates: start: 20190130, end: 20190205
  2. MULTIVITAMIN [Concomitant]
     Active Substance: VITAMINS
  3. AMBIEN [Concomitant]
     Active Substance: ZOLPIDEM TARTRATE
  4. TIDALIFIL [Concomitant]
  5. LISINOPRIL. [Concomitant]
     Active Substance: LISINOPRIL

REACTIONS (9)
  - Muscle atrophy [None]
  - Pain in extremity [None]
  - Neuropathy peripheral [None]
  - Fatigue [None]
  - Tinnitus [None]
  - Product complaint [None]
  - Insomnia [None]
  - Memory impairment [None]
  - Vision blurred [None]

NARRATIVE: CASE EVENT DATE: 20190130
